FAERS Safety Report 9825101 (Version 1)
Quarter: 2013Q4

REPORT INFORMATION
  Report Type: Spontaneous
  Country: US (occurrence: None)
  Receive Date: 20131028
  Receipt Date: 20131028
  Transmission Date: 20140711
  Serious: Yes (Other)
  Sender: FDA-Public Use
  Company Number: 2013US001922

PATIENT
  Age: 55 Year
  Sex: Female
  Weight: 90 kg

DRUGS (1)
  1. ICLUSIG (PONATINIB) TABLET, 15MG [Suspect]
     Indication: CHRONIC MYELOID LEUKAEMIA
     Dosage: 15 MG, QD, ORAL
     Route: 048
     Dates: start: 20130520

REACTIONS (6)
  - Headache [None]
  - Constipation [None]
  - Pyrexia [None]
  - Pain [None]
  - Arthralgia [None]
  - Haemorrhoidal haemorrhage [None]
